FAERS Safety Report 4576458-4 (Version None)
Quarter: 2005Q1

REPORT INFORMATION
  Report Type: 
  Country: None (occurrence: None)
  Receive Date: 20050207
  Receipt Date: 20050124
  Transmission Date: 20050727
  Serious: Yes (Hospitalization, Other)
  Sender: FDA-Public Use
  Company Number: 2005022957

PATIENT
  Age: 76 Year
  Sex: Male

DRUGS (3)
  1. CELEBREX [Suspect]
     Indication: OSTEITIS DEFORMANS
     Dosage: 200 MG (200 MG, 1 IN 1 D), ORAL
     Route: 048
     Dates: start: 20040101, end: 20041201
  2. GLIMEPIRIDE [Concomitant]
  3. LOSARTAN POTASSIUM [Concomitant]

REACTIONS (6)
  - ANAEMIA POSTOPERATIVE [None]
  - ANGINA PECTORIS [None]
  - ANGINA UNSTABLE [None]
  - CHEST PAIN [None]
  - FATIGUE [None]
  - POST PROCEDURAL COMPLICATION [None]
